FAERS Safety Report 10436395 (Version 2)
Quarter: 2014Q4

REPORT INFORMATION
  Report Type: Spontaneous
  Country: US (occurrence: US)
  Receive Date: 20140908
  Receipt Date: 20141016
  Transmission Date: 20150528
  Serious: No
  Sender: FDA-Public Use
  Company Number: US-PFIZER INC-2014249064

PATIENT
  Sex: Female

DRUGS (1)
  1. CHILDRENS ADVIL [Suspect]
     Active Substance: IBUPROFEN
     Dosage: UNK, ONCE
     Route: 048
     Dates: start: 20140906, end: 20140906

REACTIONS (2)
  - Product taste abnormal [Unknown]
  - Cough [Unknown]

NARRATIVE: CASE EVENT DATE: 20140906
